FAERS Safety Report 6039161-X (Version None)
Quarter: 2009Q1

REPORT INFORMATION
  Report Type: 
  Country: None (occurrence: None)
  Receive Date: 20090115
  Receipt Date: 20090106
  Transmission Date: 20090719
  Serious: Yes (Hospitalization)
  Sender: FDA-Public Use
  Company Number: FR-PFIZER INC-2009151770

PATIENT

DRUGS (11)
  1. ALDACTONE [Suspect]
     Indication: HYPERTENSION
     Dosage: UNK
     Route: 048
     Dates: end: 20080206
  2. NITRODERM [Suspect]
     Indication: PROPHYLAXIS
     Dosage: UNK
     Route: 062
     Dates: end: 20080206
  3. ESIDRIX [Suspect]
     Indication: HYPERTENSION
     Dosage: UNK
     Route: 048
     Dates: end: 20080206
  4. LASILIX [Suspect]
     Indication: HYPERTENSION
     Dosage: 500 MG, 2X/DAY
     Route: 048
     Dates: end: 20080206
  5. TAREG [Suspect]
     Indication: HYPERTENSION
     Dosage: UNK
     Route: 048
  6. HUMALOG [Concomitant]
     Dosage: UNK
     Route: 058
  7. SOMATULINE PR [Concomitant]
     Route: 058
  8. LEVOTHYROX [Concomitant]
     Dosage: UNK
     Route: 048
  9. TARDYFERON [Concomitant]
     Route: 048
  10. TAHOR [Concomitant]
     Dosage: UNK
     Route: 048
     Dates: end: 20080206
  11. MOPRAL [Concomitant]
     Dosage: UNK
     Route: 048
     Dates: end: 20080206

REACTIONS (3)
  - FALL [None]
  - HYPONATRAEMIA [None]
  - MALAISE [None]
